FAERS Safety Report 6203542-1 (Version None)
Quarter: 2009Q2

REPORT INFORMATION
  Report Type: 
  Country: None (occurrence: None)
  Receive Date: 20090527
  Receipt Date: 20090521
  Transmission Date: 20091009
  Serious: Yes (Other)
  Sender: FDA-Public Use
  Company Number: US-BRISTOL-MYERS SQUIBB COMPANY-14433601

PATIENT
  Age: 75 Year
  Sex: Male

DRUGS (23)
  1. DASATINIB [Suspect]
     Indication: PROSTATE CANCER
     Route: 048
     Dates: start: 20081126, end: 20081202
  2. TAXOTERE [Suspect]
     Indication: PROSTATE CANCER
     Dosage: 1 DF = 130 UNITS NOT SPECIFIED
     Route: 042
     Dates: start: 20081124, end: 20081201
  3. ASPIRIN [Concomitant]
  4. HYDROCHLOROTHIAZIDE [Concomitant]
     Dates: start: 20081109
  5. ZOLADEX [Concomitant]
  6. IMODIUM MULTI-SYMPTOM RELIEF [Concomitant]
     Indication: DIARRHOEA
  7. ALEVE [Concomitant]
     Indication: PAIN
  8. FLONASE [Concomitant]
     Indication: SEASONAL ALLERGY
  9. PAXIL [Concomitant]
     Indication: DEPRESSION
  10. SINGULAIR [Concomitant]
     Indication: CHRONIC OBSTRUCTIVE PULMONARY DISEASE
  11. AVAPRO [Concomitant]
     Indication: HYPERTENSION
  12. PRAVACHOL [Concomitant]
     Indication: HYPERCHOLESTEROLAEMIA
  13. GLUCOVANCE [Concomitant]
     Indication: DIABETES MELLITUS
  14. ADVAIR HFA [Concomitant]
     Indication: CHRONIC OBSTRUCTIVE PULMONARY DISEASE
  15. ALBUTEROL [Concomitant]
     Indication: CHRONIC OBSTRUCTIVE PULMONARY DISEASE
  16. SPIRIVA [Concomitant]
     Indication: CHRONIC OBSTRUCTIVE PULMONARY DISEASE
  17. HYDROCORTISONE OINTMENT [Concomitant]
     Indication: RASH
     Dates: start: 20081109
  18. CHLORMETHIAZOLE [Concomitant]
     Indication: RASH
     Dates: start: 20081109
  19. GOLD BOND [Concomitant]
     Indication: RASH
     Dates: start: 20081109
  20. BENADRYL [Concomitant]
     Indication: RASH
     Dates: start: 20081109
  21. PREDNISONE [Concomitant]
     Indication: PROSTATE CANCER
     Route: 048
  22. DEXAMETHASONE 4MG TAB [Concomitant]
     Indication: PREMEDICATION
  23. COMPAZINE [Concomitant]
     Indication: NAUSEA

REACTIONS (1)
  - PULMONARY EMBOLISM [None]
